FAERS Safety Report 5215631-9 (Version None)
Quarter: 2007Q1

REPORT INFORMATION
  Report Type: 
  Country: None (occurrence: None)
  Receive Date: 20070123
  Receipt Date: 20070116
  Transmission Date: 20070707
  Serious: Yes (Death)
  Sender: FDA-Public Use
  Company Number: PHBS2007GB01066

PATIENT
  Age: 22 Year
  Sex: Male

DRUGS (6)
  1. CAMPATH [Suspect]
     Indication: STEM CELL TRANSPLANT
     Route: 065
  2. BUSULPHAN [Concomitant]
     Indication: STEM CELL TRANSPLANT
     Route: 065
  3. CYCLOPHOSPHAMIDE [Concomitant]
     Indication: STEM CELL TRANSPLANT
  4. SULFAMETHOXAZOLE + TRIMETHOPRIM [Concomitant]
  5. CYCLOSPORINE [Suspect]
     Indication: STEM CELL TRANSPLANT
     Route: 065
  6. IRRADIATION [Concomitant]

REACTIONS (6)
  - AMNESIA [None]
  - CEREBRAL TOXOPLASMOSIS [None]
  - CONFUSIONAL STATE [None]
  - CSF PROTEIN INCREASED [None]
  - PYREXIA [None]
  - TOXOPLASMA SEROLOGY POSITIVE [None]
